FAERS Safety Report 14277176 (Version 1)
Quarter: 2017Q4

REPORT INFORMATION
  Report Type: Spontaneous
  Country: DE (occurrence: DE)
  Receive Date: 20171211
  Receipt Date: 20171211
  Transmission Date: 20180321
  Serious: Yes (Other)
  Sender: FDA-Public Use
  Company Number: DE-OTSUKA-DJ20127432

PATIENT
  Age: 18 Year
  Sex: Female
  Weight: 63 kg

DRUGS (5)
  1. TRUXAL [Concomitant]
     Active Substance: CHLORPROTHIXENE
     Indication: PRODUCT USED FOR UNKNOWN INDICATION
     Dosage: UNK
     Route: 065
     Dates: start: 20111025, end: 20111107
  2. ABILIFY [Suspect]
     Active Substance: ARIPIPRAZOLE
     Indication: PSYCHOTIC DISORDER
     Dosage: INCREASED TO 5 MG 21OCT11 AND AGAIN REDUCED TO 2.5 MG
     Route: 048
     Dates: start: 20111018, end: 20111104
  3. ABILIFY [Suspect]
     Active Substance: ARIPIPRAZOLE
     Indication: BIPOLAR DISORDER
  4. TRUXAL [Concomitant]
     Active Substance: CHLORPROTHIXENE
     Indication: RESTLESSNESS
  5. ABILIFY [Suspect]
     Active Substance: ARIPIPRAZOLE
     Indication: HALLUCINATION

REACTIONS (5)
  - Abortion induced [Unknown]
  - Malaise [Unknown]
  - Paraesthesia [Recovered/Resolved]
  - Maternal exposure during pregnancy [Recovered/Resolved]
  - Off label use [Unknown]

NARRATIVE: CASE EVENT DATE: 20111018
